FAERS Safety Report 8213449-6 (Version None)
Quarter: 2012Q1

REPORT INFORMATION
  Report Type: 
  Country: None (occurrence: None)
  Receive Date: 20120315
  Receipt Date: 20120229
  Transmission Date: 20120608
  Serious: Yes (Hospitalization, Congenital Anomaly)
  Sender: FDA-Public Use
  Company Number: US-ROCHE-GNE323487

PATIENT
  Sex: Male

DRUGS (11)
  1. OMALIZUMAB [Suspect]
     Indication: ASTHMA
     Dosage: FREQUENCY: NOT REPORTED
     Route: 064
     Dates: start: 20060324
  2. ALBUTEROL [Concomitant]
     Indication: BRONCHIOLITIS
     Route: 055
     Dates: start: 20110329, end: 20110407
  3. ALBUTEROL [Concomitant]
     Route: 055
     Dates: start: 20110529, end: 20110601
  4. PREVACID [Concomitant]
     Dates: start: 20110407
  5. ZANTAC [Concomitant]
     Indication: GASTROOESOPHAGEAL REFLUX DISEASE
     Dosage: UNK
     Route: 048
     Dates: start: 20110329, end: 20110407
  6. ALBUTEROL [Concomitant]
     Route: 055
     Dates: start: 20110423, end: 20110425
  7. XOPENEX [Concomitant]
     Indication: TRACHEOMALACIA
     Route: 055
     Dates: start: 20110601
  8. XOPENEX [Concomitant]
     Indication: LARYNGOMALACIA
  9. XOPENEX [Concomitant]
     Indication: BRONCHIOLITIS
  10. PREVACID [Concomitant]
     Indication: GASTROOESOPHAGEAL REFLUX DISEASE
     Dosage: DOSE: 15 MI
     Route: 048
     Dates: start: 20110323, end: 20110329
  11. XOPENEX [Concomitant]
     Indication: BRONCHOMALACIA

REACTIONS (1)
  - LARYNGOMALACIA [None]
